FAERS Safety Report 8166759-5 (Version None)
Quarter: 2012Q1

REPORT INFORMATION
  Report Type: 
  Country: None (occurrence: None)
  Receive Date: 20120227
  Receipt Date: 20120215
  Transmission Date: 20120608
  Serious: Yes (Hospitalization)
  Sender: FDA-Public Use
  Company Number: FR-MPIJNJ-2012-01079

PATIENT

DRUGS (3)
  1. MELPHALAN [Suspect]
     Indication: MULTIPLE MYELOMA
     Dosage: 18 MG/M2, UNK
     Route: 048
     Dates: start: 20081014
  2. VELCADE [Suspect]
     Indication: MULTIPLE MYELOMA
     Dosage: 21 MG/M2, UNK
     Route: 042
     Dates: start: 20081014
  3. REVLIMID [Suspect]
     Indication: MULTIPLE MYELOMA
     Dosage: 2320 MG/M2, UNK
     Route: 048
     Dates: start: 20081014

REACTIONS (1)
  - ACUTE MYELOID LEUKAEMIA [None]
